FAERS Safety Report 4732218-2 (Version None)
Quarter: 2005Q3

REPORT INFORMATION
  Report Type: 
  Country: None (occurrence: None)
  Receive Date: 20050802
  Receipt Date: 20050428
  Transmission Date: 20060218
  Serious: Yes (Hospitalization)
  Sender: FDA-Public Use
  Company Number: US-MERCK-0505USA00137

PATIENT
  Age: 51 Year
  Sex: Male
  Weight: 77 kg

DRUGS (9)
  1. VIOXX [Suspect]
     Indication: ARTHRITIS
     Route: 048
     Dates: start: 20010427, end: 20040101
  2. VIOXX [Suspect]
     Route: 048
     Dates: start: 20010427, end: 20040101
  3. VIOXX [Suspect]
     Indication: BACK PAIN
     Route: 048
     Dates: start: 20010427, end: 20040101
  4. VIOXX [Suspect]
     Route: 048
     Dates: start: 20010427, end: 20040101
  5. CELEBREX [Concomitant]
     Indication: PAIN
     Route: 065
  6. NORVASC [Concomitant]
     Indication: HYPERTENSION
     Route: 065
     Dates: start: 19950101
  7. PANLOR SS [Concomitant]
     Indication: PAIN
     Route: 065
  8. TYLENOL (CAPLET) [Concomitant]
     Indication: PAIN
     Route: 065
  9. MECLIZINE [Concomitant]
     Indication: SINUS DISORDER
     Route: 065

REACTIONS (9)
  - CARDIAC FAILURE CONGESTIVE [None]
  - CARDIAC MURMUR [None]
  - DYSPEPSIA [None]
  - GASTRIC DISORDER [None]
  - HAEMATOCHEZIA [None]
  - HAEMOPTYSIS [None]
  - MYOCARDIAL INFARCTION [None]
  - THROMBOSIS [None]
  - ULCER [None]
